FAERS Safety Report 12856228 (Version 1)
Quarter: 2016Q4

REPORT INFORMATION
  Report Type: Spontaneous
  Country: IL (occurrence: IL)
  Receive Date: 20161018
  Receipt Date: 20161018
  Transmission Date: 20170207
  Serious: Yes (Other)
  Sender: FDA-Public Use
  Company Number: IL-SUN PHARMACEUTICAL INDUSTRIES LTD-2016RR-125821

PATIENT

DRUGS (1)
  1. AMOXICILLIN. [Suspect]
     Active Substance: AMOXICILLIN
     Indication: PRODUCT USED FOR UNKNOWN INDICATION
     Dosage: UNK
     Route: 065

REACTIONS (7)
  - Urticaria [Unknown]
  - Abdominal pain [Unknown]
  - Dyspnoea [Unknown]
  - Angioedema [Unknown]
  - Vomiting [Unknown]
  - Type I hypersensitivity [Unknown]
  - Anaphylactic shock [Unknown]
